FAERS Safety Report 20053062 (Version 1)
Quarter: 2021Q4

REPORT INFORMATION
  Report Type: Spontaneous
  Country: GB (occurrence: None)
  Receive Date: 20211110
  Receipt Date: 20211110
  Transmission Date: 20220303
  Serious: Yes (Other)
  Sender: FDA-Public Use
  Company Number: 2021A792717

PATIENT
  Age: 47 Year
  Sex: Male
  Weight: 105 kg

DRUGS (24)
  1. DAPAGLIFLOZIN [Suspect]
     Active Substance: DAPAGLIFLOZIN
     Indication: Type 2 diabetes mellitus
     Dosage: 10, UNKNOWN
     Route: 065
     Dates: start: 20211021
  2. ATORVASTATIN [Concomitant]
     Active Substance: ATORVASTATIN
     Dosage: 1
     Dates: start: 20210629
  3. CEFOTAXIME [Concomitant]
     Active Substance: CEFOTAXIME SODIUM
     Dosage: 1
     Dates: start: 20211014
  4. CLARITHROMYCIN [Concomitant]
     Active Substance: CLARITHROMYCIN
     Dosage: 2
     Dates: start: 20211018
  5. CODEINE PHOSPHATE [Concomitant]
     Active Substance: CODEINE PHOSPHATE
     Dosage: 30-60 MG
     Dates: start: 20211013
  6. EMPAGLIFLOZIN [Concomitant]
     Active Substance: EMPAGLIFLOZIN
     Dosage: 1
     Dates: start: 20210629
  7. EZETIMIBE [Concomitant]
     Active Substance: EZETIMIBE
     Dosage: 1
     Dates: start: 20210629
  8. GLICLAZIDE [Concomitant]
     Active Substance: GLICLAZIDE
     Dosage: 2
     Dates: start: 20210629
  9. DEXTROSE [Concomitant]
     Active Substance: DEXTROSE
     Dates: start: 20211015
  10. ALLANTOIN/GLYCEROL [Concomitant]
     Dosage: 1-2
     Dates: start: 20211018
  11. GLYCOSAMINOGLYCANS [Concomitant]
     Active Substance: GLYCOSAMINOGLYCANS
     Dosage: 1 APPLICATION
     Dates: start: 20211018
  12. HUMULIN L [Concomitant]
     Active Substance: INSULIN HUMAN
     Dosage: 12
     Dates: start: 20211015, end: 20211018
  13. LACTULOSE [Concomitant]
     Active Substance: LACTULOSE
     Dosage: 15
     Dates: start: 20211015
  14. LEVEMIR [Concomitant]
     Active Substance: INSULIN DETEMIR
     Dosage: 14
     Dates: start: 20211021
  15. POLYETHYLENE GLYCOLS [Concomitant]
     Active Substance: POLYETHYLENE GLYCOLS
     Dosage: 1
     Dates: start: 20211015, end: 20211015
  16. METFORMIN [Concomitant]
     Active Substance: METFORMIN HYDROCHLORIDE
     Dosage: 1
     Dates: start: 20210629
  17. METRONIDAZOLE [Concomitant]
     Active Substance: METRONIDAZOLE
     Dosage: 500
     Dates: start: 20211014
  18. MORPHINE SULFATE [Concomitant]
     Active Substance: MORPHINE SULFATE
     Dosage: 5-20 MG
     Dates: start: 20211013
  19. NOVORAPID [Concomitant]
     Active Substance: INSULIN ASPART
     Dosage: 12
     Dates: start: 20211021
  20. ACETAMINOPHEN [Concomitant]
     Active Substance: ACETAMINOPHEN
     Dosage: 2
     Dates: start: 20211013
  21. POTASSIUM CHLORIDE [Concomitant]
     Active Substance: POTASSIUM CHLORIDE
     Dates: start: 20211020
  22. SENNA [Concomitant]
     Active Substance: SENNA LEAF\SENNOSIDES\SENNOSIDES A AND B
     Dosage: 1-2
     Dates: start: 20211016
  23. SODIUM CHLORIDE [Concomitant]
     Active Substance: SODIUM CHLORIDE
     Dates: start: 20211014
  24. TINZAPARIN [Concomitant]
     Active Substance: TINZAPARIN
     Dosage: 4500
     Dates: start: 20211013

REACTIONS (1)
  - Diabetic ketoacidosis [Recovered/Resolved]

NARRATIVE: CASE EVENT DATE: 20211021
